FAERS Safety Report 8577441 (Version 3)
Quarter: 2012Q4

REPORT INFORMATION
  Report Type: Spontaneous
  Country: DK (occurrence: None)
  Receive Date: 20120517
  Receipt Date: 20120905
  Transmission Date: 20130627
  Serious: Yes (Other)
  Sender: FDA-Public Use
  Company Number: 2012MA005987

PATIENT
  Age: 79 Year
  Sex: Female

DRUGS (4)
  1. GEMCITABINE HYDROCHLORIDE [Suspect]
     Indication: NEOPLASM MALIGNANT
     Route: 042
     Dates: start: 20111230
  2. ONDANSETRON [Concomitant]
  3. LORAZEPAM [Concomitant]
  4. DEXAMETHASONE [Concomitant]

REACTIONS (2)
  - Somnolence [None]
  - Balance disorder [None]
